FAERS Safety Report 14061638 (Version 1)
Quarter: 2017Q4

REPORT INFORMATION
  Report Type: Spontaneous
  Country: US (occurrence: US)
  Receive Date: 20171009
  Receipt Date: 20171009
  Transmission Date: 20180321
  Serious: No
  Sender: FDA-Public Use
  Company Number: US-TEVA-726186ACC

PATIENT
  Age: 64 Year
  Sex: Female
  Weight: 107.6 kg

DRUGS (3)
  1. ALLOP TAB-A (ALLOPURINOL) [Suspect]
     Active Substance: ALLOPURINOL
     Dates: start: 20161017
  2. ALLOP TAB-A (ALLOPURINOL) [Suspect]
     Active Substance: ALLOPURINOL
     Route: 065
     Dates: start: 20161017
  3. PREDNISONE. [Suspect]
     Active Substance: PREDNISONE
     Route: 065

REACTIONS (2)
  - Peripheral swelling [Unknown]
  - Joint swelling [Unknown]

NARRATIVE: CASE EVENT DATE: 20161018
